FAERS Safety Report 5430829-2 (Version None)
Quarter: 2007Q3

REPORT INFORMATION
  Report Type: 
  Country: None (occurrence: None)
  Receive Date: 20070830
  Receipt Date: 20061206
  Transmission Date: 20080115
  Serious: Yes (Other)
  Sender: FDA-Public Use
  Company Number: A0630627A

PATIENT
  Age: 46 Year
  Sex: Female

DRUGS (5)
  1. WELLBUTRIN [Suspect]
     Indication: BIPOLAR DISORDER
     Dosage: 300MG PER DAY
     Route: 048
     Dates: start: 20061205, end: 20061206
  2. CYMBALTA [Concomitant]
  3. ADDERALL 10 [Concomitant]
  4. RISPERDAL [Concomitant]
  5. VITAMIN CAP [Concomitant]

REACTIONS (1)
  - HALLUCINATION [None]
